FAERS Safety Report 10955711 (Version 1)
Quarter: 2015Q1

REPORT INFORMATION
  Report Type: Spontaneous
  Country: US (occurrence: None)
  Receive Date: 20150226
  Receipt Date: 20150226
  Transmission Date: 20150721
  Serious: Yes (Hospitalization)
  Sender: FDA-Public Use
  Company Number: TPA2011A04231

PATIENT
  Age: 51 Year
  Sex: Male
  Weight: 131.54 kg

DRUGS (3)
  1. CRESTOR [Concomitant]
     Active Substance: ROSUVASTATIN CALCIUM
  2. METFORMIN [Concomitant]
     Active Substance: METFORMIN HYDROCHLORIDE
  3. ACTOS [Suspect]
     Active Substance: PIOGLITAZONE HYDROCHLORIDE
     Dosage: 1 IN 1 DAY
     Route: 048
     Dates: start: 20100901, end: 20101031

REACTIONS (1)
  - Cardiac failure congestive [None]

NARRATIVE: CASE EVENT DATE: 20101031
